FAERS Safety Report 6925199-4 (Version None)
Quarter: 2010Q3

REPORT INFORMATION
  Report Type: 
  Country: None (occurrence: None)
  Receive Date: 20100810
  Receipt Date: 20100727
  Transmission Date: 20110219
  Serious: Yes (Death, Hospitalization)
  Sender: FDA-Public Use
  Company Number: US-JNJFOC-20100505617

PATIENT
  Age: 83 Year
  Sex: Male
  Weight: 85 kg

DRUGS (2)
  1. DECITABINE (DECTABINE) LYOPHILIZED POWDER [Suspect]
     Indication: MYELODYSPLASTIC SYNDROME
     Dosage: 38.8 MG, 1 IN 1 DAY, INTRAVENOUS
     Route: 042
     Dates: start: 20100504, end: 20100507
  2. DECITABINE (DECITABINE) LYOPHILIZED POWDER [Suspect]
     Indication: MYELODYSPLASTIC SYNDROME
     Dosage: 60 MG, ORAL
     Route: 048
     Dates: start: 20100503, end: 20100503

REACTIONS (3)
  - FALL [None]
  - HAEMOGLOBIN DECREASED [None]
  - LOSS OF CONSCIOUSNESS [None]
